FAERS Safety Report 6639517-8 (Version None)
Quarter: 2010Q1

REPORT INFORMATION
  Report Type: 
  Country: None (occurrence: None)
  Receive Date: 20100318
  Receipt Date: 20100303
  Transmission Date: 20100710
  Serious: Yes (Hospitalization)
  Sender: FDA-Public Use
  Company Number: US-ELI_LILLY_AND_COMPANY-US201003002000

PATIENT
  Sex: Female

DRUGS (6)
  1. EVISTA [Suspect]
     Indication: OSTEOPOROSIS
     Dosage: 30 MG, DAILY (1/D)
     Dates: start: 20080101
  2. TENORMIN [Concomitant]
     Dosage: 12.5 MG, DAILY (1/D)
  3. VITAMIN D [Concomitant]
     Dosage: UNK, DAILY (1/D)
  4. BABY ASPIRIN [Concomitant]
     Dosage: 81 MG, 4/W
  5. CALCIUM [Concomitant]
     Dosage: UNK, 4/W
  6. MULTI-VITAMIN [Concomitant]
     Dosage: UNK, DAILY (1/D)

REACTIONS (5)
  - CARDIAC DISORDER [None]
  - HEART RATE DECREASED [None]
  - HEART VALVE INCOMPETENCE [None]
  - INTENTIONAL DRUG MISUSE [None]
  - VASCULAR STENOSIS [None]
